FAERS Safety Report 15634592 (Version 2)
Quarter: 2019Q1

REPORT INFORMATION
  Report Type: Report from Study
  Country: US (occurrence: US)
  Receive Date: 20181119
  Receipt Date: 20190214
  Transmission Date: 20190417
  Serious: No
  Sender: FDA-Public Use
  Company Number: PHEH2018US048271

PATIENT
  Sex: Female

DRUGS (1)
  1. GILENYA [Suspect]
     Active Substance: FINGOLIMOD HYDROCHLORIDE
     Indication: MULTIPLE SCLEROSIS
     Dosage: 0.5 MG, QD
     Route: 048

REACTIONS (8)
  - Back pain [Unknown]
  - Influenza like illness [Unknown]
  - Pain in extremity [Unknown]
  - Cough [Unknown]
  - Ear discomfort [Unknown]
  - Ear congestion [Unknown]
  - Arthralgia [Unknown]
  - Sinus disorder [Unknown]
